FAERS Safety Report 11340592 (Version 1)
Quarter: 2015Q3

REPORT INFORMATION
  Report Type: Spontaneous
  Country: US (occurrence: None)
  Receive Date: 20150803
  Receipt Date: 20150803
  Transmission Date: 20151125
  Serious: No
  Sender: FDA-Public Use
  Company Number: None

PATIENT
  Age: 69 Year
  Sex: Male

DRUGS (1)
  1. XELJANZ [Suspect]
     Active Substance: TOFACITINIB CITRATE
     Indication: ILL-DEFINED DISORDER
     Route: 048
     Dates: start: 20150312

REACTIONS (1)
  - Alopecia [None]

NARRATIVE: CASE EVENT DATE: 20150630
